FAERS Safety Report 6417005-1 (Version None)
Quarter: 2009Q4

REPORT INFORMATION
  Report Type: 
  Country: None (occurrence: None)
  Receive Date: 20091023
  Receipt Date: 20091015
  Transmission Date: 20100525
  Serious: Yes (Hospitalization)
  Sender: FDA-Public Use
  Company Number: AUR-APU-2009-00992

PATIENT
  Age: 75 Year
  Sex: Male

DRUGS (1)
  1. LEVETIRACETAM [Suspect]
     Indication: CONVULSION
     Dosage: 1G, DAILY

REACTIONS (3)
  - CEREBRAL AMYLOID ANGIOPATHY [None]
  - CEREBRAL HAEMORRHAGE [None]
  - PLATELET AGGREGATION ABNORMAL [None]
